FAERS Safety Report 6339203-8 (Version None)
Quarter: 2009Q3

REPORT INFORMATION
  Report Type: 
  Country: None (occurrence: None)
  Receive Date: 20090903
  Receipt Date: 20090827
  Transmission Date: 20100115
  Serious: Yes (Other)
  Sender: FDA-Public Use
  Company Number: GB-AVENTIS-200915172EU

PATIENT
  Sex: Female

DRUGS (5)
  1. ENOXAPARIN SODIUM [Suspect]
  2. AMIODARONE HCL [Suspect]
  3. GABAPENTIN [Suspect]
  4. CLONAZEPAM [Suspect]
  5. ANTINEOPLASTIC AGENTS [Suspect]
     Dates: start: 20090626, end: 20090724

REACTIONS (1)
  - LEUKOPENIA [None]
